FAERS Safety Report 4872996-5 (Version None)
Quarter: 2005Q4

REPORT INFORMATION
  Report Type: 
  Country: None (occurrence: None)
  Receive Date: 20051229
  Receipt Date: 20051215
  Transmission Date: 20060501
  Serious: Yes (Other)
  Sender: FDA-Public Use
  Company Number: FRWYE190329NOV05

PATIENT
  Sex: Male

DRUGS (1)
  1. REFACTO [Suspect]
     Indication: FACTOR VIII DEFICIENCY
     Dosage: ADMINISTRATION FOR PHARMACOKINETIC STUDIES, INTRAVENOUS
     Route: 042

REACTIONS (1)
  - COAGULATION FACTOR VIII LEVEL DECREASED [None]
